FAERS Safety Report 4502728-1 (Version None)
Quarter: 2004Q4

REPORT INFORMATION
  Report Type: 
  Country: None (occurrence: None)
  Receive Date: 20041112
  Receipt Date: 20041103
  Transmission Date: 20050328
  Serious: Yes (Death, Life-Threatening, Hospitalization)
  Sender: FDA-Public Use
  Company Number: 041108-0000483

PATIENT
  Sex: Female

DRUGS (1)
  1. PANHEMATIN [Suspect]
     Indication: PORPHYRIA ACUTE
     Dosage: UNKNOWN
     Route: 065
     Dates: end: 20040601

REACTIONS (3)
  - COMA [None]
  - HYPERVISCOSITY SYNDROME [None]
  - MENTAL STATUS CHANGES [None]
